FAERS Safety Report 7098868-6 (Version None)
Quarter: 2010Q4

REPORT INFORMATION
  Report Type: 
  Country: None (occurrence: None)
  Receive Date: 20101112
  Receipt Date: 20101104
  Transmission Date: 20110411
  Serious: Yes (Hospitalization, Congenital Anomaly, Other)
  Sender: FDA-Public Use
  Company Number: US-TEVA-254108USA

PATIENT
  Sex: Male

DRUGS (5)
  1. PAROXETINE HCL [Suspect]
     Route: 064
  2. SERTRALINE HYDROCHLORIDE [Suspect]
     Route: 064
  3. FLUOXETINE HYDROCHLORIDE [Suspect]
     Route: 064
  4. VENLAFAXINE [Suspect]
     Route: 064
  5. ESCITALOPRAM OXALATE [Suspect]
     Route: 064

REACTIONS (7)
  - CYANOSIS [None]
  - GRUNTING [None]
  - LETHARGY [None]
  - PATENT DUCTUS ARTERIOSUS [None]
  - PERSISTENT FOETAL CIRCULATION [None]
  - RESPIRATORY DISTRESS [None]
  - SEPSIS [None]
